FAERS Safety Report 4322137-8 (Version None)
Quarter: 2004Q1

REPORT INFORMATION
  Report Type: 
  Country: None (occurrence: None)
  Receive Date: 20040323
  Receipt Date: 20040315
  Transmission Date: 20041129
  Serious: Yes (Life-Threatening, Hospitalization)
  Sender: FDA-Public Use
  Company Number: PHBS2004JP03621

PATIENT
  Age: 20 Year
  Sex: Male

DRUGS (5)
  1. VOLTAREN [Suspect]
     Indication: PYREXIA
     Dosage: 25 MG, BID
     Route: 054
     Dates: start: 20040312, end: 20040312
  2. SAWACILLIN [Suspect]
     Indication: ANTIPYRESIS
     Dosage: 750 MG/DAY
     Route: 048
     Dates: start: 20040312, end: 20040312
  3. CEFZON [Suspect]
     Indication: ANTIPYRESIS
     Dosage: 300 MG/DAY
     Route: 048
     Dates: start: 20040310, end: 20040312
  4. LOXONIN [Suspect]
     Indication: PYREXIA
     Dosage: 180 MG/DAY
     Route: 048
     Dates: start: 20040310, end: 20040312
  5. METILON [Suspect]
     Indication: PYREXIA
     Dosage: 1 DF/DAY
     Route: 030
     Dates: start: 20040310, end: 20040312

REACTIONS (4)
  - ACUTE RESPIRATORY DISTRESS SYNDROME [None]
  - ACUTE RESPIRATORY FAILURE [None]
  - FEELING ABNORMAL [None]
  - HYPOXIA [None]
